FAERS Safety Report 5699763-7 (Version None)
Quarter: 2008Q2

REPORT INFORMATION
  Report Type: 
  Country: None (occurrence: None)
  Receive Date: 20080408
  Receipt Date: 20080408
  Transmission Date: 20081010
  Serious: No
  Sender: FDA-Public Use
  Company Number: None

PATIENT
  Sex: Female
  Weight: 63.5036 kg

DRUGS (2)
  1. ZICAM COLD REMEDY NASAL GEL NONE GIVEN .50 FL OZ ZICAM LLX PHOSENIX/MA [Suspect]
     Indication: NASAL CONGESTION
     Dosage: 1 TIME IN EACH LOWER NOSTRIL EVERY 4 HOURS NASAL
     Route: 045
     Dates: start: 20080205, end: 20080207
  2. ZICAM COLD REMEDY NASAL GEL NONE GIVEN .50 FL OZ ZICAM LLX PHOSENIX/MA [Suspect]
     Indication: NASOPHARYNGITIS
     Dosage: 1 TIME IN EACH LOWER NOSTRIL EVERY 4 HOURS NASAL
     Route: 045
     Dates: start: 20080205, end: 20080207

REACTIONS (4)
  - ANOSMIA [None]
  - DYSGEUSIA [None]
  - EPISTAXIS [None]
  - NASAL DISCOMFORT [None]
